FAERS Safety Report 24911630 (Version 2)
Quarter: 2025Q1

REPORT INFORMATION
  Report Type: Spontaneous
  Country: JP (occurrence: JP)
  Receive Date: 20250131
  Receipt Date: 20250325
  Transmission Date: 20250408
  Serious: Yes (Hospitalization)
  Sender: BRISTOL-MYERS SQUIBB COMPANY
  Company Number: JP-TAIHO-2025-000657

PATIENT
  Age: 31 Year
  Sex: Female

DRUGS (3)
  1. ABRAXANE [Suspect]
     Active Substance: PACLITAXEL
     Indication: Lung squamous cell carcinoma metastatic
     Route: 041
  2. KEYTRUDA [Concomitant]
     Active Substance: PEMBROLIZUMAB
     Indication: Lung squamous cell carcinoma metastatic
  3. CARBOPLATIN [Concomitant]
     Active Substance: CARBOPLATIN
     Indication: Lung squamous cell carcinoma metastatic

REACTIONS (2)
  - Hepatic enzyme increased [Unknown]
  - Platelet count decreased [Unknown]
